FAERS Safety Report 18534649 (Version 1)
Quarter: 2020Q4

REPORT INFORMATION
  Report Type: Spontaneous
  Country: ES (occurrence: ES)
  Receive Date: 20201123
  Receipt Date: 20201123
  Transmission Date: 20210114
  Serious: Yes (Hospitalization)
  Sender: FDA-Public Use
  Company Number: ES-MYLANLABS-2020M1096163

PATIENT
  Age: 63 Year
  Sex: Female

DRUGS (1)
  1. TAMOXIFEN [Suspect]
     Active Substance: TAMOXIFEN
     Indication: BREAST CANCER
     Dosage: 20 MILLIGRAM, QD APPROXIMATELY 10 YEARS; SHE PRESENTED ABOUT 12 YEARS AFTER THERAPY WAS STOPPED
     Route: 065

REACTIONS (2)
  - Macular hole [Not Recovered/Not Resolved]
  - Blindness [Not Recovered/Not Resolved]
